FAERS Safety Report 9800077 (Version 3)
Quarter: 2015Q3

REPORT INFORMATION
  Report Type: Spontaneous
  Country: US (occurrence: US)
  Receive Date: 20140106
  Receipt Date: 20150806
  Transmission Date: 20151125
  Serious: Yes (Other)
  Sender: FDA-Public Use
  Company Number: US-GILEAD-2010-0032194

PATIENT
  Age: 56 Year
  Sex: Male
  Weight: 72.57 kg

DRUGS (29)
  1. SINGULAIR [Concomitant]
     Active Substance: MONTELUKAST SODIUM
  2. POTASSIUM [Concomitant]
     Active Substance: POTASSIUM
     Route: 055
  3. ATORVASTATIN CALCIUM/AMLODIPINE BESILATE [Concomitant]
     Route: 055
  4. LANTUS [Concomitant]
     Active Substance: INSULIN GLARGINE
     Route: 055
  5. ZETIA [Concomitant]
     Active Substance: EZETIMIBE
     Route: 055
  6. ALBUTEROL. [Concomitant]
     Active Substance: ALBUTEROL
     Route: 055
  7. XALANTAN 0.005% [Concomitant]
  8. MEROPENEM. [Concomitant]
     Active Substance: MEROPENEM
  9. GABAPENTIN. [Concomitant]
     Active Substance: GABAPENTIN
     Route: 055
  10. MUCOMYST [Concomitant]
     Active Substance: ACETYLCYSTEINE
     Route: 055
  11. GARLIC OIL [Concomitant]
     Active Substance: GARLIC OIL
     Route: 055
  12. SOMA [Concomitant]
     Active Substance: CARISOPRODOL
  13. NOVOLOG [Concomitant]
     Active Substance: INSULIN ASPART
     Route: 055
  14. FLOMAX [Concomitant]
     Active Substance: TAMSULOSIN HYDROCHLORIDE
     Route: 055
  15. LETAIRIS [Suspect]
     Active Substance: AMBRISENTAN
     Indication: PULMONARY ARTERIAL HYPERTENSION
     Route: 048
     Dates: start: 20100903
  16. KLONAPIN [Concomitant]
  17. ELESTAT 0.5% [Concomitant]
  18. ADVAIR HFA [Concomitant]
     Active Substance: FLUTICASONE PROPIONATE\SALMETEROL XINAFOATE
     Route: 055
  19. DEMADEX [Concomitant]
     Active Substance: TORSEMIDE
  20. PREDNISONE. [Concomitant]
     Active Substance: PREDNISONE
     Route: 055
  21. ACETAMINOPHEN. [Concomitant]
     Active Substance: ACETAMINOPHEN
     Route: 055
  22. CINNAMON. [Concomitant]
     Active Substance: CINNAMON
     Route: 055
  23. PERCOCET [Concomitant]
     Active Substance: ACETAMINOPHEN\OXYCODONE HYDROCHLORIDE
     Route: 055
  24. EFFEXOR XR [Concomitant]
     Active Substance: VENLAFAXINE HYDROCHLORIDE
  25. ARTHROTEC [Concomitant]
     Active Substance: DICLOFENAC SODIUM\MISOPROSTOL
     Route: 055
  26. PROTONIX [Concomitant]
     Active Substance: PANTOPRAZOLE SODIUM
     Route: 055
  27. VITAMIN C [Concomitant]
     Active Substance: ASCORBIC ACID
     Route: 055
  28. ASPIRIN. [Concomitant]
     Active Substance: ASPIRIN
     Route: 055
  29. MULTIVITAMIN [Concomitant]
     Active Substance: VITAMINS
     Route: 055

REACTIONS (1)
  - No therapeutic response [Unknown]
